FAERS Safety Report 16016225 (Version 2)
Quarter: 2019Q4

REPORT INFORMATION
  Report Type: Report from Study
  Country: NL (occurrence: NL)
  Receive Date: 20190228
  Receipt Date: 20191230
  Transmission Date: 20200122
  Serious: No
  Sender: FDA-Public Use
  Company Number: NL-ROCHE-2274330

PATIENT
  Age: 35 Year
  Sex: Male
  Weight: 80 kg

DRUGS (8)
  1. TAVEGIL [CLEMASTINE] [Concomitant]
     Active Substance: CLEMASTINE
     Dosage: ONCE BEFORE INFUSION?15/FEB/2019
     Route: 065
     Dates: start: 20190201
  2. BACLOFEN. [Concomitant]
     Active Substance: BACLOFEN
     Route: 048
  3. HYDROCHLOROTHIAZIDE;METOPROLOL [Concomitant]
     Indication: HYPERTENSION
     Route: 065
  4. ZANTAC [Concomitant]
     Active Substance: RANITIDINE HYDROCHLORIDE
     Dosage: ONCE BEFORE INFUSION
     Route: 065
     Dates: start: 20190201
  5. RANITIDINE. [Concomitant]
     Active Substance: RANITIDINE
     Dosage: ONCE BEFORE INFUSION
     Route: 065
     Dates: start: 20190215
  6. OCRELIZUMAB. [Suspect]
     Active Substance: OCRELIZUMAB
     Indication: PRIMARY PROGRESSIVE MULTIPLE SCLEROSIS
     Dosage: 01/FEB/2019 (VISIT 2), 15/FEB/2019 (VISIT 3)
     Route: 042
  7. PREDNISOLON [PREDNISOLONE] [Concomitant]
     Active Substance: PREDNISOLONE
     Dosage: ONCE BEFORE INFUSION?15/FEB/2019
     Route: 065
     Dates: start: 20190201
  8. PARACETAMOL [Concomitant]
     Active Substance: ACETAMINOPHEN
     Dosage: ONCE BEFORE INFUSION?15/FEB/2019
     Route: 065
     Dates: start: 20190201

REACTIONS (1)
  - Nasopharyngitis [Recovered/Resolved]

NARRATIVE: CASE EVENT DATE: 20190207
